FAERS Safety Report 22792005 (Version 3)
Quarter: 2023Q4

REPORT INFORMATION
  Report Type: Spontaneous
  Country: JP (occurrence: JP)
  Receive Date: 20230807
  Receipt Date: 20231003
  Transmission Date: 20240109
  Serious: Yes (Hospitalization, Other)
  Sender: FDA-Public Use
  Company Number: JP-Vifor (International) Inc.-VIT-2023-05590

PATIENT
  Age: 74 Year
  Sex: Male
  Weight: 61.8 kg

DRUGS (12)
  1. TAVNEOS [Suspect]
     Active Substance: AVACOPAN
     Indication: Microscopic polyangiitis
     Dosage: 30 MILLIGRAM
     Route: 048
     Dates: start: 20230615, end: 20230707
  2. RITUXIMAB [Concomitant]
     Active Substance: RITUXIMAB
     Indication: Microscopic polyangiitis
     Dosage: 500 MILLIGRAM, QD
     Route: 040
  3. ADRENAL [Concomitant]
     Active Substance: EPINEPHRINE
     Indication: Microscopic polyangiitis
     Dosage: 30 MILLIGRAM, QD
  4. PREDONINE [Concomitant]
     Active Substance: PREDNISOLONE
     Indication: Microscopic polyangiitis
     Dosage: 60 MILLIGRAM, QD
     Route: 040
     Dates: start: 20230601, end: 20230614
  5. PREDONINE [Concomitant]
     Active Substance: PREDNISOLONE
     Indication: Glomerulonephritis rapidly progressive
     Dosage: 40 MILLIGRAM, QD
     Route: 040
     Dates: start: 20230615, end: 20230621
  6. PREDONINE [Concomitant]
     Active Substance: PREDNISOLONE
     Indication: Pulmonary alveolar haemorrhage
  7. PREDONINE [Concomitant]
     Active Substance: PREDNISOLONE
     Indication: Interstitial lung disease
  8. LEVOFLOXACIN HEMIHYDRATE [Concomitant]
     Active Substance: LEVOFLOXACIN
     Dosage: 500 MILLIGRAM, QD
     Route: 040
     Dates: start: 20230610, end: 20230610
  9. LEVOFLOXACIN HEMIHYDRATE [Concomitant]
     Active Substance: LEVOFLOXACIN
     Dosage: 250 MILLIGRAM, QD
     Route: 040
     Dates: start: 20230611, end: 20230617
  10. VONOPRAZAN FUMARATE [Concomitant]
     Active Substance: VONOPRAZAN FUMARATE
     Dosage: 10 MILLIGRAM, QD
     Route: 048
     Dates: start: 20230601
  11. SULFAMETHOXAZOLE\TRIMETHOPRIM [Concomitant]
     Active Substance: SULFAMETHOXAZOLE\TRIMETHOPRIM
     Dosage: 1 DOSAGE FORM
     Route: 048
     Dates: start: 20230601
  12. AZOSEMIDE [Concomitant]
     Active Substance: AZOSEMIDE
     Dosage: 30 MILLIGRAM, QD
     Route: 048
     Dates: start: 20230622, end: 20230713

REACTIONS (1)
  - Liver disorder [Recovering/Resolving]

NARRATIVE: CASE EVENT DATE: 20230707
